FAERS Safety Report 19205676 (Version 1)
Quarter: 2021Q2

REPORT INFORMATION
  Report Type: Spontaneous
  Country: US (occurrence: US)
  Receive Date: 20210503
  Receipt Date: 20210503
  Transmission Date: 20210717
  Serious: No
  Sender: FDA-Public Use
  Company Number: US-FARMAPROD-202101-0146

PATIENT
  Sex: Female

DRUGS (4)
  1. PRED FORTE [Concomitant]
     Active Substance: PREDNISOLONE ACETATE
  2. OXERVATE [Suspect]
     Active Substance: CENEGERMIN-BKBJ
     Indication: CORNEAL SCAR
     Route: 047
     Dates: start: 20210119
  3. OXERVATE [Suspect]
     Active Substance: CENEGERMIN-BKBJ
     Indication: CORNEAL DEGENERATION
  4. ERYTHROMYCIN. [Concomitant]
     Active Substance: ERYTHROMYCIN

REACTIONS (2)
  - Headache [Unknown]
  - Eye pain [Unknown]
